FAERS Safety Report 5430710-9 (Version None)
Quarter: 2007Q3

REPORT INFORMATION
  Report Type: 
  Country: None (occurrence: None)
  Receive Date: 20070830
  Receipt Date: 20070301
  Transmission Date: 20080115
  Serious: No
  Sender: FDA-Public Use
  Company Number: A0618009A

PATIENT
  Age: 44 Year
  Sex: Female

DRUGS (1)
  1. WELLBUTRIN XL [Suspect]
     Indication: SMOKING CESSATION THERAPY
     Dosage: 300MG PER DAY
     Route: 048
     Dates: start: 20060728

REACTIONS (2)
  - ANXIETY [None]
  - PANIC ATTACK [None]
